FAERS Safety Report 8363587-2 (Version None)
Quarter: 2012Q2

REPORT INFORMATION
  Report Type: 
  Country: None (occurrence: None)
  Receive Date: 20120516
  Receipt Date: 20120504
  Transmission Date: 20120825
  Serious: Yes (Hospitalization)
  Sender: FDA-Public Use
  Company Number: US-JNJFOC-20120506504

PATIENT
  Sex: Female
  Weight: 56.7 kg

DRUGS (9)
  1. VICODIN [Concomitant]
     Indication: PAIN
     Route: 048
     Dates: start: 20030101
  2. REMICADE [Suspect]
     Indication: COLITIS ULCERATIVE
     Route: 042
     Dates: start: 20110101
  3. REMICADE [Suspect]
     Route: 042
     Dates: start: 20080801
  4. AMLODIPINE BESYLATE [Concomitant]
     Indication: BLOOD PRESSURE
     Route: 048
     Dates: start: 20030101
  5. REMICADE [Suspect]
     Route: 042
     Dates: start: 20120409
  6. ATIVAN [Concomitant]
     Indication: SLEEP DISORDER
     Route: 048
  7. BLOOD PRESSURE MEDICATION NOS [Suspect]
     Indication: BLOOD PRESSURE
     Route: 048
     Dates: end: 20100101
  8. ATIVAN [Concomitant]
     Indication: ANXIETY
     Route: 048
  9. FAMOTIDINE [Concomitant]
     Indication: GASTRIC DISORDER
     Route: 048
     Dates: start: 20060101

REACTIONS (9)
  - MUSCULOSKELETAL PAIN [None]
  - ADVERSE EVENT [None]
  - HYPERTENSION [None]
  - CHEST PAIN [None]
  - BACK PAIN [None]
  - HOSPITALISATION [None]
  - HYPERCHOLESTEROLAEMIA [None]
  - DYSPNOEA [None]
  - NAUSEA [None]
